FAERS Safety Report 10224385 (Version 5)
Quarter: 2016Q2

REPORT INFORMATION
  Report Type: Report from Study
  Country: GB (occurrence: GB)
  Receive Date: 20140609
  Receipt Date: 20160530
  Transmission Date: 20160815
  Serious: Yes (Hospitalization, Other)
  Sender: FDA-Public Use
  Company Number: GB-JNJFOC-20140500605

PATIENT
  Age: 70 Year
  Sex: Female
  Weight: 82.7 kg

DRUGS (7)
  1. CETIRIZINE [Concomitant]
     Active Substance: CETIRIZINE HYDROCHLORIDE
     Dosage: INTERMITTENTLY,30 TABLETS.??THE MEDICATION WAS LAST ISSUED ON 30-JAN-2014
     Route: 065
     Dates: start: 2009
  2. LOSARTAN. [Concomitant]
     Active Substance: LOSARTAN
     Dosage: THE MEDICATION WAS LAST ISSUED ON 12-MAY-2014
     Route: 065
     Dates: start: 201308
  3. BALNEUM [Concomitant]
     Dosage: 20 - 60 ML TO BATH WATER.??THE MEDICATION WAS LAST ISSUED ON 12-MAY-2014
     Route: 065
  4. IBANDRONIC ACID [Concomitant]
     Active Substance: IBANDRONIC ACID
     Dosage: 3X1 TABLET.??THE MEDICATION WAS LAST ISSUED ON 30-JAN-2014
     Route: 048
     Dates: start: 2009
  5. STELARA [Suspect]
     Active Substance: USTEKINUMAB
     Indication: PSORIASIS
     Route: 058
     Dates: start: 20140513
  6. CALCIUM + D3 [Concomitant]
     Active Substance: CALCIUM\CHOLECALCIFEROL
     Dosage: THE MEDICATION WAS LAST ISSUED ON 30-JAN-2014
     Route: 065
     Dates: start: 2009
  7. STELARA [Suspect]
     Active Substance: USTEKINUMAB
     Indication: PSORIASIS
     Route: 058
     Dates: start: 201106

REACTIONS (6)
  - Wound infection pseudomonas [Recovered/Resolved]
  - Laceration [Recovered/Resolved]
  - Impaired healing [Recovered/Resolved]
  - Psoriasis [Recovering/Resolving]
  - Squamous cell carcinoma [Recovered/Resolved]
  - Fatigue [Unknown]

NARRATIVE: CASE EVENT DATE: 201309
